FAERS Safety Report 22691715 (Version 2)
Quarter: 2023Q4

REPORT INFORMATION
  Report Type: Report from Study
  Country: US (occurrence: US)
  Receive Date: 20230711
  Receipt Date: 20231129
  Transmission Date: 20240110
  Serious: Yes (Other)
  Sender: FDA-Public Use
  Company Number: US-ABBVIE-5321559

PATIENT
  Sex: Male

DRUGS (1)
  1. VENCLEXTA [Suspect]
     Active Substance: VENETOCLAX
     Indication: Leukaemia
     Dosage: TAKE 1 TABLET (100 MG TOTAL) BY MOUTH DAILY FOR 21 DAYS, THEN STOP FOR 7 DAYS. REPEAT? CYCLE OF 2...
     Route: 048

REACTIONS (2)
  - Blood test abnormal [Unknown]
  - White blood cell count decreased [Unknown]
